FAERS Safety Report 7299369-2 (Version None)
Quarter: 2011Q1

REPORT INFORMATION
  Report Type: 
  Country: None (occurrence: None)
  Receive Date: 20110217
  Receipt Date: 20110210
  Transmission Date: 20110831
  Serious: Yes (Congenital Anomaly)
  Sender: FDA-Public Use
  Company Number: B0631549B

PATIENT
  Sex: Male
  Weight: 3.7 kg

DRUGS (3)
  1. MGO [Concomitant]
     Indication: CONSTIPATION
     Route: 064
     Dates: start: 20091116, end: 20100111
  2. PLACEBO [Suspect]
     Indication: MAJOR DEPRESSION
     Route: 048
     Dates: start: 20091020, end: 20091026
  3. PAROXETINE [Suspect]
     Indication: MAJOR DEPRESSION
     Route: 064
     Dates: start: 20091027, end: 20100111

REACTIONS (4)
  - MATERNAL DRUGS AFFECTING FOETUS [None]
  - CRYPTORCHISM [None]
  - CAESAREAN SECTION [None]
  - DRUG EXPOSURE DURING PREGNANCY [None]
